FAERS Safety Report 5548511-X (Version None)
Quarter: 2007Q4

REPORT INFORMATION
  Report Type: 
  Country: None (occurrence: None)
  Receive Date: 20071211
  Receipt Date: 20070320
  Transmission Date: 20080405
  Serious: No
  Sender: FDA-Public Use
  Company Number: US-AMGEN-KDL214772

PATIENT
  Sex: Male
  Weight: 106.7 kg

DRUGS (5)
  1. ENBREL [Suspect]
     Indication: RHEUMATOID ARTHRITIS
     Route: 058
     Dates: start: 20070214
  2. METHOTREXATE [Concomitant]
  3. ACTONEL [Concomitant]
     Dates: start: 20061108
  4. ARAVA [Concomitant]
     Dates: start: 20061108
  5. PREDNISONE [Concomitant]

REACTIONS (3)
  - INJECTION SITE ERYTHEMA [None]
  - INJECTION SITE SWELLING [None]
  - INJECTION SITE WARMTH [None]
